FAERS Safety Report 19077324 (Version 1)
Quarter: 2021Q1

REPORT INFORMATION
  Report Type: Spontaneous
  Country: US (occurrence: US)
  Receive Date: 20210331
  Receipt Date: 20210331
  Transmission Date: 20210420
  Serious: No
  Sender: FDA-Public Use
  Company Number: US-SA-2021SA079319

PATIENT
  Age: 80 Year
  Sex: Male

DRUGS (1)
  1. CAPRELSA [Suspect]
     Active Substance: VANDETANIB
     Indication: THYROID CANCER
     Dosage: 200MG ONCE DAILY FOR 5 DAYS A WEEK
     Route: 048
     Dates: start: 20111007

REACTIONS (1)
  - Wrong technique in product usage process [Unknown]
